FAERS Safety Report 11151793 (Version 1)
Quarter: 2015Q2

REPORT INFORMATION
  Report Type: Spontaneous
  Country: IN (occurrence: None)
  Receive Date: 20150528
  Receipt Date: 20150528
  Transmission Date: 20150821
  Serious: Yes (Other)
  Sender: FDA-Public Use
  Company Number: FK201502369

PATIENT
  Age: 33 Year
  Sex: Female

DRUGS (2)
  1. SODIUM CHLORIDE. [Suspect]
     Active Substance: SODIUM CHLORIDE
     Indication: HYPONATRAEMIA
     Dosage: 1 LIT, 1 IN 1 TOTAL
  2. SODIUM CHLORIDE. [Suspect]
     Active Substance: SODIUM CHLORIDE
     Indication: HYPOKALAEMIA
     Dosage: 1 LIT, 1 IN 1 TOTAL

REACTIONS (8)
  - Osmotic demyelination syndrome [None]
  - Dysphagia [None]
  - Confusional state [None]
  - Quadriplegia [None]
  - Dysarthria [None]
  - Ataxia [None]
  - Tremor [None]
  - Mental status changes [None]
